FAERS Safety Report 9114863 (Version 2)
Quarter: 2013Q1

REPORT INFORMATION
  Report Type: Spontaneous
  Country: CA (occurrence: CA)
  Receive Date: 20130208
  Receipt Date: 20130225
  Transmission Date: 20140127
  Serious: Yes (Death)
  Sender: FDA-Public Use
  Company Number: CA-ABBOTT-13P-028-1045330-00

PATIENT
  Sex: Male
  Weight: 79.9 kg

DRUGS (1)
  1. LUPRON DEPOT [Suspect]
     Indication: PROSTATE CANCER
     Dosage: LAST INJECTION 07 NOV 2012
     Route: 030
     Dates: start: 20050301

REACTIONS (1)
  - Death [Fatal]
